FAERS Safety Report 18410594 (Version 1)
Quarter: 2020Q4

REPORT INFORMATION
  Report Type: Spontaneous
  Country: US (occurrence: US)
  Receive Date: 20201021
  Receipt Date: 20201021
  Transmission Date: 20210114
  Serious: Yes (Other)
  Sender: FDA-Public Use
  Company Number: US-BAYER-2020-224512

PATIENT
  Age: 85 Year
  Sex: Female

DRUGS (1)
  1. ASPIRIN (PAIN AND FEVER) [Suspect]
     Active Substance: ASPIRIN
     Route: 048

REACTIONS (2)
  - Haematemesis [Unknown]
  - Drug hypersensitivity [Unknown]
